FAERS Safety Report 6835669-5 (Version None)
Quarter: 2010Q3

REPORT INFORMATION
  Report Type: 
  Country: None (occurrence: None)
  Receive Date: 20100713
  Receipt Date: 20100702
  Transmission Date: 20110219
  Serious: Yes (Hospitalization)
  Sender: FDA-Public Use
  Company Number: FR-PFIZER INC-2010082882

PATIENT
  Age: 71 Year
  Sex: Male

DRUGS (4)
  1. CLINDAMYCIN HCL [Suspect]
     Dosage: UNK
     Dates: start: 20100512, end: 20100514
  2. SELOKEN [Suspect]
     Indication: ATRIAL FIBRILLATION
     Dosage: 0.25 MG, 3X/DAY
     Route: 048
     Dates: start: 20100514, end: 20100520
  3. CLAMOXYL [Suspect]
     Indication: LUNG DISORDER
     Dosage: 3 G DAILY
     Dates: start: 20100514, end: 20100528
  4. GENTALLINE [Suspect]
     Dosage: 80 MG
     Route: 042
     Dates: start: 20100512, end: 20100514

REACTIONS (1)
  - HEPATITIS [None]
